FAERS Safety Report 5350770-3 (Version None)
Quarter: 2007Q2

REPORT INFORMATION
  Report Type: 
  Country: None (occurrence: None)
  Receive Date: 20070608
  Receipt Date: 20070531
  Transmission Date: 20071010
  Serious: Yes (Other)
  Sender: FDA-Public Use
  Company Number: US-ASTRAZENECA-2006UW07965

PATIENT
  Sex: Male
  Weight: 61.4 kg

DRUGS (7)
  1. SEROQUEL [Suspect]
     Route: 048
     Dates: start: 19990101, end: 20020101
  2. ABILIFY [Concomitant]
  3. CLOZARIL [Concomitant]
  4. HALDOL [Concomitant]
     Dates: start: 19900101
  5. RISPERDAL [Concomitant]
  6. THORAZINE [Concomitant]
     Dates: start: 19900101
  7. ZYPREXA [Concomitant]
     Dates: start: 19900101

REACTIONS (1)
  - TARDIVE DYSKINESIA [None]
